FAERS Safety Report 6529886-1 (Version None)
Quarter: 2010Q1

REPORT INFORMATION
  Report Type: 
  Country: None (occurrence: None)
  Receive Date: 20100107
  Receipt Date: 20100105
  Transmission Date: 20100710
  Serious: Yes (Other)
  Sender: FDA-Public Use
  Company Number: A0837895A

PATIENT
  Age: 66 Year
  Sex: Female

DRUGS (5)
  1. TYKERB [Suspect]
     Indication: DRUG USE FOR UNKNOWN INDICATION
     Dosage: 1250MG PER DAY
     Route: 048
     Dates: end: 20091228
  2. XELODA [Suspect]
     Indication: DRUG USE FOR UNKNOWN INDICATION
     Route: 065
     Dates: end: 20091222
  3. DOCETAXEL [Concomitant]
     Dates: start: 20091228
  4. CARBOPLATIN [Concomitant]
     Dates: start: 20091228
  5. TRASTUZUMAB [Concomitant]
     Dates: start: 20091228

REACTIONS (8)
  - CONSTIPATION [None]
  - DIARRHOEA [None]
  - DRY SKIN [None]
  - FATIGUE [None]
  - HEPATIC NEOPLASM [None]
  - INCREASED UPPER AIRWAY SECRETION [None]
  - PRODUCTIVE COUGH [None]
  - UPPER RESPIRATORY TRACT INFECTION [None]
